FAERS Safety Report 7388279-8 (Version None)
Quarter: 2011Q2

REPORT INFORMATION
  Report Type: 
  Country: None (occurrence: None)
  Receive Date: 20110401
  Receipt Date: 20110314
  Transmission Date: 20111010
  Serious: Yes (Death, Other)
  Sender: FDA-Public Use
  Company Number: US-BAYER-201041721NA

PATIENT
  Sex: Male
  Weight: 90.703 kg

DRUGS (6)
  1. COUMADIN [Concomitant]
  2. POTASSIUM [POTASSIUM] [Concomitant]
     Route: 048
  3. TRASYLOL [Suspect]
     Indication: CORONARY ARTERY BYPASS
     Dosage: UNK
     Route: 042
     Dates: start: 20050726
  4. VERAPAMIL [Concomitant]
     Route: 048
  5. HYTRIN [Concomitant]
     Route: 048
  6. LIPITOR [Concomitant]
     Route: 048

REACTIONS (11)
  - ANHEDONIA [None]
  - RENAL FAILURE [None]
  - ANXIETY [None]
  - FEAR [None]
  - DEATH [None]
  - STRESS [None]
  - UNEVALUABLE EVENT [None]
  - INJURY [None]
  - MULTI-ORGAN FAILURE [None]
  - PAIN [None]
  - EMOTIONAL DISTRESS [None]
